FAERS Safety Report 11448282 (Version 1)
Quarter: 2015Q3

REPORT INFORMATION
  Report Type: Spontaneous
  Country: US (occurrence: US)
  Receive Date: 20150831
  Receipt Date: 20150831
  Transmission Date: 20151125
  Serious: No
  Sender: FDA-Public Use
  Company Number: US-ELI_LILLY_AND_COMPANY-US200906005588

PATIENT
  Sex: Male
  Weight: 181.41 kg

DRUGS (3)
  1. BYETTA [Concomitant]
     Active Substance: EXENATIDE
     Dates: start: 200905
  2. ANTIVIRALS NOS [Concomitant]
     Active Substance: UNSPECIFIED INGREDIENT
  3. CYMBALTA [Suspect]
     Active Substance: DULOXETINE HYDROCHLORIDE
     Indication: DEPRESSION
     Dosage: 30 MG, DAILY (1/D)
     Dates: start: 200904

REACTIONS (2)
  - Catatonia [Unknown]
  - Flat affect [Unknown]

NARRATIVE: CASE EVENT DATE: 2009
